FAERS Safety Report 9677708 (Version 2)
Quarter: 2014Q1

REPORT INFORMATION
  Report Type: Spontaneous
  Country: None (occurrence: US)
  Receive Date: 20131108
  Receipt Date: 20140314
  Transmission Date: 20141002
  Serious: Yes (Hospitalization)
  Sender: FDA-Public Use
  Company Number: US-BRACCO-010135

PATIENT
  Age: 38 Year
  Sex: Female

DRUGS (1)
  1. MULTIHANCE [Suspect]
     Indication: NUCLEAR MAGNETIC RESONANCE IMAGING
     Dates: start: 20130909, end: 20130909

REACTIONS (2)
  - Heart injury [Recovered/Resolved with Sequelae]
  - Anaphylactic reaction [Recovered/Resolved]
